FAERS Safety Report 6520005-4 (Version None)
Quarter: 2009Q4

REPORT INFORMATION
  Report Type: 
  Country: None (occurrence: None)
  Receive Date: 20091229
  Receipt Date: 20091221
  Transmission Date: 20100525
  Serious: Yes (Other)
  Sender: FDA-Public Use
  Company Number: US-JNJFOC-20091007823

PATIENT
  Sex: Female
  Weight: 81.65 kg

DRUGS (10)
  1. TOPAMAX [Suspect]
     Indication: EPILEPSY
     Route: 048
  2. BRAND TOPAMAX [Suspect]
     Indication: EPILEPSY
     Route: 048
  3. FOLIC ACID [Concomitant]
     Indication: ANAEMIA
  4. VITAMIN [Concomitant]
     Indication: ANAEMIA
  5. BENADRYL [Concomitant]
     Indication: PRURITUS
  6. AMBIEN [Concomitant]
     Indication: SLEEP DISORDER
  7. KEPPRA [Concomitant]
     Indication: CONVULSION
  8. NORVASC [Concomitant]
     Indication: HYPERTENSION
  9. POTASSIUM CHLORIDE [Concomitant]
     Indication: BLOOD POTASSIUM
  10. ATIVAN [Concomitant]
     Indication: DEPRESSION

REACTIONS (11)
  - ALOPECIA [None]
  - DIARRHOEA [None]
  - DIZZINESS [None]
  - DYSPNOEA [None]
  - INSOMNIA [None]
  - LOSS OF CONSCIOUSNESS [None]
  - NAUSEA [None]
  - PRURITUS [None]
  - THERAPEUTIC RESPONSE DECREASED [None]
  - VERTIGO [None]
  - VISION BLURRED [None]
